FAERS Safety Report 12591536 (Version 1)
Quarter: 2016Q3

REPORT INFORMATION
  Report Type: Spontaneous
  Country: US (occurrence: US)
  Receive Date: 20160726
  Receipt Date: 20160726
  Transmission Date: 20161109
  Serious: No
  Sender: FDA-Public Use
  Company Number: US-HORIZON-BUP-0083-2016

PATIENT
  Age: 6 Year
  Sex: Male

DRUGS (4)
  1. BUPHENYL [Suspect]
     Active Substance: SODIUM PHENYLBUTYRATE
     Indication: UREA CYCLE ENZYME DEFICIENCY
     Dosage: 18 TABLETS DAILY
  2. CYCLINEX [Concomitant]
  3. CITRULINE [Concomitant]
  4. PROPHREE [Concomitant]

REACTIONS (1)
  - Rash pruritic [Unknown]
